FAERS Safety Report 25979711 (Version 1)
Quarter: 2025Q4

REPORT INFORMATION
  Report Type: Spontaneous
  Country: GB (occurrence: GB)
  Receive Date: 20251030
  Receipt Date: 20251030
  Transmission Date: 20260118
  Serious: Yes (Death)
  Sender: TEVA
  Company Number: GB-Accord-509455

PATIENT
  Sex: Female

DRUGS (1)
  1. OXYBUTYNIN [Suspect]
     Active Substance: OXYBUTYNIN
     Indication: Product used for unknown indication
     Dosage: STRENGTH: 3.9 MG/24 HOUR
     Route: 065

REACTIONS (2)
  - Death [Fatal]
  - Product supply issue [Unknown]

NARRATIVE: CASE EVENT DATE: 20250101
